FAERS Safety Report 5722811-2 (Version None)
Quarter: 2008Q2

REPORT INFORMATION
  Report Type: 
  Country: None (occurrence: None)
  Receive Date: 20080429
  Receipt Date: 20080122
  Transmission Date: 20081010
  Serious: No
  Sender: FDA-Public Use
  Company Number: US-ASTRAZENECA-2008UW01639

PATIENT
  Age: 70 Year
  Sex: Female
  Weight: 91.2 kg

DRUGS (9)
  1. NEXIUM [Suspect]
     Indication: GASTRITIS
     Route: 048
     Dates: start: 20080101
  2. NEXIUM [Suspect]
     Indication: REFLUX OESOPHAGITIS
     Route: 048
     Dates: start: 20080101
  3. METFORMIN HCL [Concomitant]
  4. GLIPIZIDE [Concomitant]
  5. COREG [Concomitant]
  6. AVALIDE [Concomitant]
  7. WELLBUTRIN [Concomitant]
  8. VESICARE [Concomitant]
  9. ZETIA [Concomitant]

REACTIONS (2)
  - ABDOMINAL PAIN UPPER [None]
  - ILL-DEFINED DISORDER [None]
